FAERS Safety Report 7920455-5 (Version None)
Quarter: 2011Q4

REPORT INFORMATION
  Report Type: 
  Country: None (occurrence: None)
  Receive Date: 20111117
  Receipt Date: 20111108
  Transmission Date: 20120403
  Serious: Yes (Other)
  Sender: FDA-Public Use
  Company Number: PHHY2009JP20811

PATIENT
  Sex: Male

DRUGS (25)
  1. WYTENS [Concomitant]
     Dosage: 4 MG, UNK
     Route: 048
     Dates: start: 20080527
  2. SHAKUYAKUKANZOUTOU [Concomitant]
     Dosage: 3 DF, UNK
     Route: 048
     Dates: start: 20080527
  3. ALOSENN [Concomitant]
     Dosage: 1.5 G, UNK
     Route: 048
     Dates: start: 20090713, end: 20090727
  4. TASIGNA [Suspect]
     Indication: CHRONIC MYELOID LEUKAEMIA
     Dosage: 400 MG PER DAY
     Route: 048
     Dates: start: 20090323, end: 20090824
  5. ALLOPURINOL [Concomitant]
     Dosage: 200 MG, UNK
     Route: 048
     Dates: start: 20080527
  6. SHAKUYAKUKANZOUTOU [Concomitant]
     Dosage: 3 DF, UNK
     Route: 048
     Dates: start: 20090323
  7. KETOPROFEN [Concomitant]
     Dosage: 40 MG, UNK
     Route: 061
     Dates: start: 20090323
  8. SPRYCEL [Concomitant]
     Dosage: 70 MG, UNK
     Route: 048
     Dates: start: 20091228
  9. ADALAT [Concomitant]
     Dosage: 40 MG, UNK
     Route: 048
     Dates: start: 20080527
  10. PENFILL N [Concomitant]
     Dosage: 24 IU, UNK
     Route: 058
     Dates: start: 20080527
  11. PENFILL N [Concomitant]
     Dosage: 24 IU, UNK
     Route: 058
     Dates: start: 20090323
  12. ADALAT [Concomitant]
     Dosage: 40 MG, UNK
     Route: 048
     Dates: start: 20090323
  13. KETOPROFEN [Concomitant]
     Dosage: 40 MG, UNK
     Route: 061
     Dates: start: 20080527
  14. TASIGNA [Suspect]
     Dosage: 800 MG PER DAY
     Route: 048
     Dates: start: 20090824, end: 20091227
  15. WYTENS [Concomitant]
     Dosage: 4 MG, UNK
     Route: 048
     Dates: start: 20090323
  16. ALLOPURINOL [Concomitant]
     Dosage: 200 MG, UNK
     Route: 048
     Dates: start: 20090323
  17. TRICHLORMETHIAZIDE [Concomitant]
     Dosage: 2 MG, UNK
     Route: 048
     Dates: start: 20090323
  18. DIOVAN [Concomitant]
     Dosage: 160 MG, UNK
     Route: 048
     Dates: start: 20040301
  19. DIOVAN [Concomitant]
     Dosage: 160 MG, UNK
     Route: 048
     Dates: start: 20090323
  20. RINDERON-VG [Concomitant]
     Dosage: UNK
     Route: 061
     Dates: start: 20080527
  21. DIOVAN [Concomitant]
     Dosage: 160 MG, UNK
     Route: 048
     Dates: start: 20080527
  22. GLEEVEC [Concomitant]
     Indication: CHRONIC MYELOID LEUKAEMIA
     Dosage: 400 MG, UNK
     Route: 048
     Dates: start: 20010301, end: 20090301
  23. TRICHLORMETHIAZIDE [Concomitant]
     Dosage: 2 MG, UNK
     Route: 048
     Dates: start: 20080527
  24. RINDERON-VG [Concomitant]
     Dosage: UNK
     Route: 061
     Dates: start: 20090323
  25. CEFACLOR [Concomitant]
     Dosage: 750 MG, UNK
     Route: 048
     Dates: start: 20091005

REACTIONS (17)
  - NEOPLASM PROGRESSION [None]
  - DYSPHONIA [None]
  - PHOTOPHOBIA [None]
  - GAMMA-GLUTAMYLTRANSFERASE INCREASED [None]
  - WHITE BLOOD CELL COUNT INCREASED [None]
  - BASOPHIL COUNT INCREASED [None]
  - NEOPLASM MALIGNANT [None]
  - BLOOD UREA INCREASED [None]
  - WEIGHT DECREASED [None]
  - PALPITATIONS [None]
  - HEPATIC FUNCTION ABNORMAL [None]
  - BLOOD LACTATE DEHYDROGENASE INCREASED [None]
  - BLOOD ALKALINE PHOSPHATASE INCREASED [None]
  - MALAISE [None]
  - HYPERGLYCAEMIA [None]
  - BLOOD CREATININE INCREASED [None]
  - CONSTIPATION [None]
